FAERS Safety Report 4375355-7 (Version None)
Quarter: 2004Q2

REPORT INFORMATION
  Report Type: 
  Country: None (occurrence: None)
  Receive Date: 20040607
  Receipt Date: 20040525
  Transmission Date: 20050107
  Serious: No
  Sender: FDA-Public Use
  Company Number: 163-20785-03100489

PATIENT

DRUGS (1)
  1. THALIDOMIDE [Suspect]

REACTIONS (1)
  - BENIGN INTRACRANIAL HYPERTENSION [None]
